FAERS Safety Report 23834011 (Version 3)
Quarter: 2024Q3

REPORT INFORMATION
  Report Type: Spontaneous
  Country: US (occurrence: US)
  Receive Date: 20240509
  Receipt Date: 20240925
  Transmission Date: 20241016
  Serious: Yes (Disabling, Other)
  Sender: AMGEN
  Company Number: US-HORIZON THERAPEUTICS-HZN-2024-005238

PATIENT
  Age: 58 Year
  Sex: Male

DRUGS (38)
  1. TEPEZZA [Suspect]
     Active Substance: TEPROTUMUMAB-TRBW
     Indication: Graves^ disease
     Dosage: Q3WK (STRENGTH: 500 MILLIGRAM)
     Route: 042
     Dates: start: 20220311
  2. TEPEZZA [Suspect]
     Active Substance: TEPROTUMUMAB-TRBW
     Indication: Endocrine ophthalmopathy
     Dosage: Q3WK (STRENGTH: 500 MILLIGRAM)
     Route: 042
     Dates: start: 20220401
  3. TEPEZZA [Suspect]
     Active Substance: TEPROTUMUMAB-TRBW
     Dosage: Q3WK (STRENGTH: 500 MILLIGRAM)
     Route: 042
     Dates: start: 20220508
  4. TEPEZZA [Suspect]
     Active Substance: TEPROTUMUMAB-TRBW
     Dosage: Q3WK (STRENGTH: 500 MILLIGRAM)
     Route: 042
     Dates: start: 20220524
  5. TEPEZZA [Suspect]
     Active Substance: TEPROTUMUMAB-TRBW
     Dosage: Q3WK (STRENGTH: 500 MILLIGRAM)
     Route: 042
     Dates: start: 20220614
  6. TEPEZZA [Suspect]
     Active Substance: TEPROTUMUMAB-TRBW
     Dosage: Q3WK (STRENGTH: 500 MILLIGRAM)
     Route: 042
     Dates: start: 20220701
  7. TEPEZZA [Suspect]
     Active Substance: TEPROTUMUMAB-TRBW
     Dosage: Q3WK (STRENGTH: 500 MILLIGRAM)
     Route: 042
     Dates: start: 20220722
  8. PREDNISONE [Suspect]
     Active Substance: PREDNISONE
     Indication: Swelling
     Dosage: 10 MILLIGRAM, QD
     Route: 048
  9. PREDNISONE [Suspect]
     Active Substance: PREDNISONE
     Dosage: 10 MILLIGRAM, TID
     Route: 048
  10. PREDNISONE [Suspect]
     Active Substance: PREDNISONE
     Dosage: 10 MILLIGRAM, QID
     Route: 048
  11. PREDNISONE [Suspect]
     Active Substance: PREDNISONE
     Dosage: 20 MILLIGRAM, QD
     Route: 048
  12. PREDNISONE [Suspect]
     Active Substance: PREDNISONE
     Dosage: 30 MILLIGRAM, QD
     Route: 048
  13. PREDNISONE [Suspect]
     Active Substance: PREDNISONE
     Dosage: 40 MILLIGRAM, QD
     Route: 048
  14. ACARBOSE [Concomitant]
     Active Substance: ACARBOSE
     Dosage: 25 MILLIGRAM
     Route: 048
     Dates: start: 20230320
  15. ACARBOSE [Concomitant]
     Active Substance: ACARBOSE
     Dosage: 50 MILLIGRAM
     Route: 048
  16. ALBUTEROL [Concomitant]
     Active Substance: ALBUTEROL
     Dosage: 90 MICROGRAM
     Dates: start: 20220406
  17. BENZONATATE [Concomitant]
     Active Substance: BENZONATATE
     Dosage: 100 MILLIGRAM, QD (2 TO 3 TIMES)
     Route: 048
     Dates: start: 20230106
  18. CEPHALEXIN [Concomitant]
     Active Substance: CEPHALEXIN
     Dosage: 500 MILLIGRAM, Q8H
     Route: 048
     Dates: start: 20230314
  19. CETIRIZINE [Concomitant]
     Active Substance: CETIRIZINE HYDROCHLORIDE
     Dosage: 10 MILLIGRAM, QD
     Route: 048
     Dates: start: 20230106
  20. EZETIMIBE [Concomitant]
     Active Substance: EZETIMIBE
     Dosage: 10 MILLIGRAM
     Route: 065
     Dates: start: 20221229
  21. ERGOCALCIFEROL [Concomitant]
     Active Substance: ERGOCALCIFEROL
     Dosage: 1250 MICROGRAM (50000 UNITS)
     Route: 065
     Dates: start: 20230315
  22. FOLIC ACID [Concomitant]
     Active Substance: FOLIC ACID
     Dosage: 1 MILLIGRAM
     Route: 065
     Dates: start: 20230320
  23. FLUTICASONE [Concomitant]
     Active Substance: FLUTICASONE
     Dosage: 50 MICROGRAM, QD
     Route: 045
     Dates: start: 20230106
  24. GLUCAGON [Concomitant]
     Active Substance: GLUCAGON\GLUCAGON HYDROCHLORIDE\WATER
     Dosage: 1 MILLIGRAM
     Route: 065
     Dates: start: 20230104
  25. GLUCAGON [Concomitant]
     Active Substance: GLUCAGON\GLUCAGON HYDROCHLORIDE\WATER
     Dosage: (1 MILLIGRAM KIT)
     Dates: start: 20230104
  26. GABAPENTIN [Concomitant]
     Active Substance: GABAPENTIN
     Dosage: 300 MILLIGRAM
     Route: 048
     Dates: start: 20230119
  27. BENZHYDROCODONE AND ACETAMINOPHEN [Concomitant]
     Active Substance: ACETAMINOPHEN\BENZHYDROCODONE HYDROCHLORIDE
     Indication: Pain
     Dosage: UNK, Q6H
     Route: 048
     Dates: start: 20230119
  28. IBUPROFEN [Concomitant]
     Active Substance: IBUPROFEN
     Dosage: 600 MILLIGRAM
     Route: 048
     Dates: start: 20230117
  29. HUMALOG JUNIOR KWIKPEN [Concomitant]
     Active Substance: INSULIN LISPRO
     Dosage: UNK, (100 UNITS/MILLILITRE, UNDER THE SKIN)
     Route: 065
     Dates: start: 20220525
  30. LEVOTHYROXINE [Concomitant]
     Active Substance: LEVOTHYROXINE\LEVOTHYROXINE SODIUM
     Dosage: 112 MICROGRAM, QD
     Route: 048
     Dates: start: 20230126
  31. SELZENTRY [Concomitant]
     Active Substance: MARAVIROC
     Dosage: 300 MILLIGRAM
     Route: 048
     Dates: start: 20230320
  32. LOSARTAN [Concomitant]
     Active Substance: LOSARTAN\LOSARTAN POTASSIUM
     Dosage: 25 MILLIGRAM
     Route: 065
     Dates: start: 20230125
  33. METOPROLOL SUCCINATE [Concomitant]
     Active Substance: METOPROLOL SUCCINATE
     Dosage: 25 MILLIGRAM (HAS NOT TAKEN IN 3 YEARS)
     Route: 065
  34. XARELTO [Concomitant]
     Active Substance: RIVAROXABAN
     Dosage: 20 MILLIGRAM (HAS NOT TAKEN IN }1 NEAR)
     Route: 048
  35. ISENTRESS [Concomitant]
     Active Substance: RALTEGRAVIR POTASSIUM
     Dosage: 400 MILLIGRAM
     Route: 048
     Dates: start: 20230320
  36. PEG-3350 AND ELECTROLYTES [Concomitant]
     Active Substance: POLYETHYLENE GLYCOL 3350\POTASSIUM CHLORIDE\SODIUM BICARBONATE\SODIUM CHLORIDE\SODIUM SULFATE
     Dosage: UNK
     Route: 048
     Dates: start: 20221201
  37. TADALAFIL [Concomitant]
     Active Substance: TADALAFIL
     Dosage: 20 MILLIGRAM (PATIENT NOT TAKING)
     Route: 048
     Dates: start: 20220512
  38. STIOLTO RESPIMAT [Concomitant]
     Active Substance: OLODATEROL HYDROCHLORIDE\TIOTROPIUM BROMIDE MONOHYDRATE
     Dosage: UNK (TAKE 2 PUFFS)
     Route: 065
     Dates: start: 20220406

REACTIONS (8)
  - Deafness permanent [Not Recovered/Not Resolved]
  - Endocrine ophthalmopathy [Unknown]
  - Graves^ disease [Unknown]
  - Emotional distress [Not Recovered/Not Resolved]
  - Anxiety [Not Recovered/Not Resolved]
  - Influenza [Unknown]
  - Product dose omission issue [Unknown]
  - Diarrhoea [Unknown]

NARRATIVE: CASE EVENT DATE: 20220101
